FAERS Safety Report 21233585 (Version 1)
Quarter: 2022Q3

REPORT INFORMATION
  Report Type: Spontaneous
  Country: US (occurrence: US)
  Receive Date: 20220819
  Receipt Date: 20220819
  Transmission Date: 20221027
  Serious: Yes (Hospitalization, Other)
  Sender: FDA-Public Use
  Company Number: US-INSUD PHARMA-2208US03221

PATIENT

DRUGS (3)
  1. TESTOSTERONE [Suspect]
     Active Substance: TESTOSTERONE
     Indication: Muscle building therapy
     Dosage: INTRAMUSCULAR INJECTIONS FOR MORE THAN 18 YEARS, LAST USE 1 MONTH PRIOR
     Route: 030
  2. TAMOXIFEN [Concomitant]
     Active Substance: TAMOXIFEN
     Dosage: USED FOR MANY YEARS, LAST USE 1 MONTH PRIOR
  3. RALOXIFENE [Concomitant]
     Active Substance: RALOXIFENE
     Dosage: USED FOR MANY YEARS, LAST USE 1 MONTH PRIOR

REACTIONS (16)
  - Atrial fibrillation [Recovered/Resolved]
  - Tachycardia induced cardiomyopathy [Recovered/Resolved]
  - Cardiac failure congestive [Recovering/Resolving]
  - Dyspnoea exertional [Recovering/Resolving]
  - Oedema peripheral [Recovering/Resolving]
  - Haemoptysis [Recovering/Resolving]
  - Fatigue [Recovering/Resolving]
  - Asthenia [Recovering/Resolving]
  - Weight increased [Recovering/Resolving]
  - Crepitations [Recovering/Resolving]
  - Breath sounds abnormal [Recovering/Resolving]
  - Pulmonary oedema [Recovering/Resolving]
  - Pleural effusion [Recovering/Resolving]
  - Poor quality sleep [Recovering/Resolving]
  - Snoring [Recovering/Resolving]
  - Intentional product misuse [Unknown]
